FAERS Safety Report 15924757 (Version 2)
Quarter: 2019Q1

REPORT INFORMATION
  Report Type: Spontaneous
  Country: US (occurrence: US)
  Receive Date: 20190205
  Receipt Date: 20190219
  Transmission Date: 20190417
  Serious: No
  Sender: FDA-Public Use
  Company Number: US-ALLERGAN-1838528US

PATIENT
  Age: 51 Year
  Sex: Female
  Weight: 79.37 kg

DRUGS (2)
  1. BOTOX [Suspect]
     Active Substance: ONABOTULINUMTOXINA
     Indication: MIGRAINE
  2. BOTOX [Suspect]
     Active Substance: ONABOTULINUMTOXINA
     Indication: FACIAL SPASM

REACTIONS (7)
  - Pain in jaw [Recovering/Resolving]
  - Facial paresis [Recovering/Resolving]
  - Muscle twitching [Recovering/Resolving]
  - Vasodilatation [Not Recovered/Not Resolved]
  - Contusion [Recovered/Resolved]
  - Injection site haemorrhage [Recovered/Resolved]
  - Pain [Recovered/Resolved]

NARRATIVE: CASE EVENT DATE: 201804
